FAERS Safety Report 10756439 (Version 2)
Quarter: 2015Q1

REPORT INFORMATION
  Report Type: Other
  Country: US (occurrence: US)
  Receive Date: 20150202
  Receipt Date: 20150211
  Transmission Date: 20150721
  Serious: Yes (Death)
  Sender: FDA-Public Use
  Company Number: US-FRI-1000074200

PATIENT
  Age: 44 Year
  Sex: Female

DRUGS (3)
  1. ASENAPINE [Suspect]
     Active Substance: ASENAPINE
  2. AMITRIPTYLINE [Suspect]
     Active Substance: AMITRIPTYLINE
  3. CLONAZEPAM. [Suspect]
     Active Substance: CLONAZEPAM

REACTIONS (3)
  - Cardiac arrest [None]
  - Completed suicide [Fatal]
  - Respiratory arrest [None]
